FAERS Safety Report 5903772-X (Version None)
Quarter: 2008Q3

REPORT INFORMATION
  Report Type: 
  Country: None (occurrence: None)
  Receive Date: 20080930
  Receipt Date: 20080918
  Transmission Date: 20090109
  Serious: Yes (Life-Threatening, Hospitalization, Other)
  Sender: FDA-Public Use
  Company Number: US-ELI_LILLY_AND_COMPANY-US200808001324

PATIENT
  Sex: Male
  Weight: 96.145 kg

DRUGS (9)
  1. BYETTA [Suspect]
     Indication: TYPE 2 DIABETES MELLITUS
     Dosage: 10 UG, 2/D
     Route: 058
     Dates: start: 20060701, end: 20060801
  2. BYETTA [Suspect]
     Dosage: 10 UG, 2/D
     Route: 058
     Dates: start: 20060801, end: 20080729
  3. METFORMIN HCL [Concomitant]
     Dosage: 500 MG, 2/D
     Route: 048
     Dates: start: 20040101
  4. LISINOPRIL [Concomitant]
     Dosage: 10 MG, DAILY (1/D)
     Route: 048
     Dates: start: 20040101
  5. LIPITOR [Concomitant]
     Dosage: 40 MG, DAILY (1/D)
     Route: 048
     Dates: start: 20040101
  6. PRANDIN [Concomitant]
     Dosage: 15 MG, 2/D
     Route: 048
     Dates: start: 20080501
  7. METOPROLOL TARTRATE [Concomitant]
     Dosage: 25 MG, 2/D
     Route: 048
     Dates: start: 20040101
  8. NIASPAN [Concomitant]
     Dosage: 500 MG, DAILY (1/D)
     Route: 048
     Dates: start: 20040101
  9. LEVOTHYROXINE SODIUM [Concomitant]
     Dosage: 0.15 MG, DAILY (1/D)
     Route: 048
     Dates: start: 20040101

REACTIONS (5)
  - LACTIC ACIDOSIS [None]
  - PANCREATITIS ACUTE [None]
  - RENAL FAILURE ACUTE [None]
  - RESPIRATORY FAILURE [None]
  - WEIGHT DECREASED [None]
